FAERS Safety Report 14342808 (Version 1)
Quarter: 2017Q4

REPORT INFORMATION
  Report Type: Spontaneous
  Country: US (occurrence: US)
  Receive Date: 20171229
  Receipt Date: 20171229
  Transmission Date: 20180321
  Serious: Yes (Hospitalization)
  Sender: FDA-Public Use
  Company Number: None

PATIENT
  Sex: Female

DRUGS (19)
  1. VITAMIN B12 [Concomitant]
     Active Substance: CYANOCOBALAMIN
  2. HCTZ [Concomitant]
     Active Substance: HYDROCHLOROTHIAZIDE
  3. CALCIUM+D3 [Concomitant]
  4. FISH OIL [Concomitant]
     Active Substance: FISH OIL
  5. CLONIDINE. [Concomitant]
     Active Substance: CLONIDINE
  6. PROCRIT [Suspect]
     Active Substance: ERYTHROPOIETIN
     Indication: ANAEMIA
     Dosage: ?          OTHER FREQUENCY:QMO;?
     Route: 058
     Dates: start: 20120717
  7. LEVEMIR [Concomitant]
     Active Substance: INSULIN DETEMIR
  8. K CL [Concomitant]
  9. METAMUCIL [Concomitant]
     Active Substance: PLANTAGO SEED
  10. FA [Concomitant]
  11. ATORVASTATIN [Concomitant]
     Active Substance: ATORVASTATIN
  12. MULTIVITE [Concomitant]
     Active Substance: VITAMINS
  13. DOCUSATE NA [Concomitant]
     Active Substance: DOCUSATE
  14. LISINOPRIL. [Concomitant]
     Active Substance: LISINOPRIL
  15. FERROUS FUMERATE [Concomitant]
     Active Substance: FERROUS FUMARATE
  16. MUTAMYCIN [Concomitant]
     Active Substance: MITOMYCIN
  17. AMLODIPINE [Concomitant]
     Active Substance: AMLODIPINE BESYLATE
  18. OMEPRAZOLE. [Concomitant]
     Active Substance: OMEPRAZOLE
  19. OCCUVITE [Concomitant]

REACTIONS (1)
  - Cholelithiasis [None]
